FAERS Safety Report 7937735-X (Version None)
Quarter: 2011Q4

REPORT INFORMATION
  Report Type: 
  Country: None (occurrence: None)
  Receive Date: 20111123
  Receipt Date: 20111117
  Transmission Date: 20120403
  Serious: Yes (Hospitalization, Other)
  Sender: FDA-Public Use
  Company Number: PHEH2011US009673

PATIENT
  Sex: Female

DRUGS (3)
  1. AREDIA [Suspect]
     Dosage: UNK
  2. DEXAMETHASONE [Concomitant]
     Dosage: UNK
     Dates: start: 20110316, end: 20110615
  3. VELCADE [Suspect]
     Dosage: 2.3 MG, CYCLIC
     Route: 042
     Dates: start: 20110316, end: 20110622

REACTIONS (7)
  - VOMITING [None]
  - FULL BLOOD COUNT DECREASED [None]
  - PANCREATITIS [None]
  - NAUSEA [None]
  - ABDOMINAL PAIN [None]
  - ILEUS [None]
  - BLOOD TRIGLYCERIDES INCREASED [None]
